FAERS Safety Report 9537832 (Version 1)
Quarter: 2013Q3

REPORT INFORMATION
  Report Type: Spontaneous
  Country: FR (occurrence: FR)
  Receive Date: 20130919
  Receipt Date: 20130919
  Transmission Date: 20140515
  Serious: Yes (Other)
  Sender: FDA-Public Use
  Company Number: PHHY2013FR104223

PATIENT
  Age: 34 Year
  Sex: Female

DRUGS (2)
  1. ACLASTA [Suspect]
     Dosage: 5MG/100ML
     Route: 042
  2. ACLASTA [Suspect]
     Dosage: 5MG/100ML, ONCE
     Route: 042
     Dates: start: 20110628

REACTIONS (3)
  - Phonophobia [Recovered/Resolved]
  - Headache [Recovered/Resolved]
  - Vomiting [Recovered/Resolved]
